FAERS Safety Report 6833554-6 (Version None)
Quarter: 2010Q3

REPORT INFORMATION
  Report Type: 
  Country: None (occurrence: None)
  Receive Date: 20100712
  Receipt Date: 20070327
  Transmission Date: 20110219
  Serious: No
  Sender: FDA-Public Use
  Company Number: US-PFIZER INC-2007026164

PATIENT
  Sex: Female
  Weight: 90.72 kg

DRUGS (5)
  1. CHANTIX [Suspect]
     Indication: SMOKING CESSATION THERAPY
     Dates: start: 20070305
  2. ZOLOFT [Concomitant]
  3. BUSPAR [Concomitant]
  4. SYNTHROID [Concomitant]
     Indication: HYPERTHYROIDISM
  5. NICOTINE [Concomitant]
     Indication: SMOKING CESSATION THERAPY

REACTIONS (2)
  - DYSPNOEA [None]
  - INFLUENZA LIKE ILLNESS [None]
